FAERS Safety Report 15215760 (Version 1)
Quarter: 2018Q3

REPORT INFORMATION
  Report Type: Spontaneous
  Country: US (occurrence: US)
  Receive Date: 20180730
  Receipt Date: 20180730
  Transmission Date: 20181010
  Serious: No
  Sender: FDA-Public Use
  Company Number: US-ENDO PHARMACEUTICALS INC-2017-005361

PATIENT
  Sex: Female
  Weight: 63.49 kg

DRUGS (1)
  1. SUMAVEL DOSEPRO [Suspect]
     Active Substance: SUMATRIPTAN SUCCINATE
     Indication: MIGRAINE
     Dosage: UNKNOWN, INJECT INTO THIGH AT ONSET OF MIGRAINE
     Route: 065

REACTIONS (6)
  - Device issue [Unknown]
  - Injection site pain [Recovered/Resolved]
  - Therapeutic response decreased [Unknown]
  - Product colour issue [Unknown]
  - Device malfunction [Recovered/Resolved]
  - Injection site bruising [Recovered/Resolved]
